FAERS Safety Report 12582615 (Version 2)
Quarter: 2016Q3

REPORT INFORMATION
  Report Type: Spontaneous
  Country: JP (occurrence: JP)
  Receive Date: 20160722
  Receipt Date: 20160809
  Transmission Date: 20161109
  Serious: Yes (Other)
  Sender: FDA-Public Use
  Company Number: JP-FERRINGPH-2016FE03321

PATIENT

DRUGS (2)
  1. GONAX [Suspect]
     Active Substance: DEGARELIX
     Indication: PROSTATE CANCER
     Dosage: 80 MG, MONTHLY
     Route: 058
     Dates: start: 20150317, end: 20160607
  2. ODYNE [Concomitant]
     Active Substance: FLUTAMIDE
     Dosage: UNK
     Route: 048

REACTIONS (4)
  - Liver disorder [Not Recovered/Not Resolved]
  - Ascites [Unknown]
  - Pancreatitis acute [Unknown]
  - Prostate cancer [Unknown]

NARRATIVE: CASE EVENT DATE: 20160509
